FAERS Safety Report 20526322 (Version 1)
Quarter: 2022Q1

REPORT INFORMATION
  Report Type: Spontaneous
  Country: US (occurrence: US)
  Receive Date: 20220228
  Receipt Date: 20220228
  Transmission Date: 20220423
  Serious: No
  Sender: FDA-Public Use
  Company Number: US-JNJFOC-20220254036

PATIENT
  Age: 74 Year
  Sex: Male

DRUGS (8)
  1. XARELTO [Suspect]
     Active Substance: RIVAROXABAN
     Indication: Product used for unknown indication
     Route: 048
  2. RUXOLITINIB PHOSPHATE [Suspect]
     Active Substance: RUXOLITINIB PHOSPHATE
     Indication: Blood disorder
     Route: 065
     Dates: start: 20210302
  3. LISINOPRIL [Concomitant]
     Active Substance: LISINOPRIL
  4. LOPERAMIDE [Concomitant]
     Active Substance: LOPERAMIDE
  5. SIROLIMUS [Concomitant]
     Active Substance: SIROLIMUS
  6. TRAMADOL [Concomitant]
     Active Substance: TRAMADOL
  7. ACYCLOVIR [Concomitant]
     Active Substance: ACYCLOVIR
  8. TACROLIMUS [Concomitant]
     Active Substance: TACROLIMUS

REACTIONS (1)
  - Platelet count decreased [Unknown]

NARRATIVE: CASE EVENT DATE: 20210801
